FAERS Safety Report 8709624 (Version 2)
Quarter: 2014Q3

REPORT INFORMATION
  Report Type: Spontaneous
  Country: US (occurrence: US)
  Receive Date: 20120806
  Receipt Date: 20140822
  Transmission Date: 20150326
  Serious: Yes (Hospitalization)
  Sender: FDA-Public Use
  Company Number: US-GLAXOSMITHKLINE-A0988349A

PATIENT
  Sex: Female
  Weight: 76.4 kg

DRUGS (6)
  1. ZOCOR [Concomitant]
     Active Substance: SIMVASTATIN
  2. AVANDIA [Suspect]
     Active Substance: ROSIGLITAZONE MALEATE
     Indication: DIABETES MELLITUS
     Dosage: 8MG PER DAY
     Route: 048
     Dates: start: 200207, end: 20090309
  3. NORVASC [Concomitant]
     Active Substance: AMLODIPINE BESYLATE
  4. ROSIGLITAZONE MALEATE. [Suspect]
     Active Substance: ROSIGLITAZONE MALEATE
     Indication: DIABETES MELLITUS
     Dosage: 8MG PER DAY
     Route: 048
     Dates: start: 200704
  5. GLUCOTROL [Concomitant]
     Active Substance: GLIPIZIDE
  6. TOPROL XL [Concomitant]
     Active Substance: METOPROLOL SUCCINATE

REACTIONS (6)
  - Transient ischaemic attack [Unknown]
  - Cardiac failure congestive [Unknown]
  - Acute coronary syndrome [Unknown]
  - Acute pulmonary oedema [Unknown]
  - Coronary artery disease [Unknown]
  - Myocardial infarction [Not Recovered/Not Resolved]
